FAERS Safety Report 6071749-2 (Version None)
Quarter: 2009Q1

REPORT INFORMATION
  Report Type: 
  Country: None (occurrence: None)
  Receive Date: 20090205
  Receipt Date: 20090126
  Transmission Date: 20090719
  Serious: Yes (Hospitalization)
  Sender: FDA-Public Use
  Company Number: 1000003029

PATIENT
  Age: 46 Year
  Sex: Male

DRUGS (3)
  1. ESCITALOPRAM [Suspect]
     Dosage: 0.7143 MG (5 MG, 1 IN 1 WK), ORAL; 10 MG (10 MG, 1 IN 1 D), ORAL
     Route: 048
     Dates: start: 20080619
  2. IMOVANE [Concomitant]
  3. LEXOMIL [Concomitant]

REACTIONS (5)
  - ARACHNOID CYST [None]
  - CEREBRAL CYST [None]
  - CONDITION AGGRAVATED [None]
  - CONVULSION [None]
  - MENINGEAL DISORDER [None]
